FAERS Safety Report 7471727-2 (Version None)
Quarter: 2011Q2

REPORT INFORMATION
  Report Type: 
  Country: None (occurrence: None)
  Receive Date: 20110511
  Receipt Date: 20101118
  Transmission Date: 20111010
  Serious: No
  Sender: FDA-Public Use
  Company Number: A0704601A

PATIENT
  Age: 82 Year
  Sex: Female

DRUGS (13)
  1. CELEBREX [Concomitant]
  2. ATENOLOL [Concomitant]
  3. UNKNOWN MEDICATION [Concomitant]
  4. PROCHLORPERAZINE TAB [Concomitant]
  5. FENTORA [Concomitant]
  6. FEMARA [Concomitant]
  7. DILAUDID [Concomitant]
  8. INSPRA [Concomitant]
  9. COUMADIN [Concomitant]
  10. LASIX [Concomitant]
  11. TYKERB [Suspect]
     Indication: BREAST CANCER
     Dosage: 1250MG PER DAY
     Route: 048
     Dates: start: 20080118
  12. LANOXIN [Concomitant]
  13. CYCLOBENZAPRINE [Concomitant]

REACTIONS (4)
  - NAUSEA [None]
  - VOMITING [None]
  - DIARRHOEA [None]
  - ASTHENIA [None]
